FAERS Safety Report 16078806 (Version 1)
Quarter: 2019Q1

REPORT INFORMATION
  Report Type: Spontaneous
  Country: US (occurrence: US)
  Receive Date: 20190315
  Receipt Date: 20190315
  Transmission Date: 20190418
  Serious: No
  Sender: FDA-Public Use
  Company Number: US-PERRIGO-18US002233

PATIENT
  Age: 70 Year
  Sex: Female
  Weight: 90.7 kg

DRUGS (3)
  1. SCOPOLAMINE [Suspect]
     Active Substance: SCOPOLAMINE
     Dosage: 1 MG, SINGLE
     Route: 062
     Dates: start: 20180207, end: 20180209
  2. LOTREL [Concomitant]
     Active Substance: AMLODIPINE BESYLATE\BENAZEPRIL HYDROCHLORIDE
     Indication: HYPERTENSION
     Dosage: 5/10MG, UNKNOWN
     Route: 065
     Dates: start: 1998
  3. SCOPOLAMINE [Suspect]
     Active Substance: SCOPOLAMINE
     Indication: PROPHYLAXIS
     Dosage: 1 MG, SINGLE
     Route: 062
     Dates: start: 20180206, end: 20180207

REACTIONS (1)
  - Drug ineffective [Unknown]

NARRATIVE: CASE EVENT DATE: 20180206
